FAERS Safety Report 5608149-2 (Version None)
Quarter: 2008Q1

REPORT INFORMATION
  Report Type: 
  Country: None (occurrence: None)
  Receive Date: 20080130
  Receipt Date: 20080123
  Transmission Date: 20080703
  Serious: Yes (Life-Threatening, Other)
  Sender: FDA-Public Use
  Company Number: US-ELI_LILLY_AND_COMPANY-US200610001616

PATIENT
  Sex: Male
  Weight: 95.238 kg

DRUGS (1)
  1. ZYPREXA [Suspect]
     Dosage: 30 MG, DAILY (1/D)
     Dates: start: 19960101, end: 19980101

REACTIONS (7)
  - ADVERSE DRUG REACTION [None]
  - COMA [None]
  - COORDINATION ABNORMAL [None]
  - FALL [None]
  - GENERAL PHYSICAL HEALTH DETERIORATION [None]
  - PENIS DISORDER [None]
  - TYPE 2 DIABETES MELLITUS [None]
